FAERS Safety Report 7528620-6 (Version None)
Quarter: 2011Q2

REPORT INFORMATION
  Report Type: 
  Country: None (occurrence: None)
  Receive Date: 20110607
  Receipt Date: 20040915
  Transmission Date: 20111010
  Serious: Yes (Other)
  Sender: FDA-Public Use
  Company Number: PHFR2004GB03393

PATIENT
  Sex: Female

DRUGS (4)
  1. HALOPERIDOL [Concomitant]
     Route: 065
  2. DIAZEPAM [Concomitant]
     Route: 065
  3. DEPAKOTE [Concomitant]
     Route: 065
  4. CLOZARIL [Suspect]
     Indication: SCHIZOPHRENIA
     Route: 048
     Dates: start: 20020326

REACTIONS (4)
  - TOOTH ABSCESS [None]
  - DELIRIUM [None]
  - SOMNOLENCE [None]
  - BODY TEMPERATURE INCREASED [None]
